FAERS Safety Report 8832588 (Version 2)
Quarter: 2014Q2

REPORT INFORMATION
  Report Type: Spontaneous
  Country: US (occurrence: US)
  Receive Date: 20121010
  Receipt Date: 20131024
  Transmission Date: 20141212
  Serious: No
  Sender: FDA-Public Use
  Company Number: US-PFIZER INC-2012247821

PATIENT
  Age: 17 Year
  Sex: Male
  Weight: 63.49 kg

DRUGS (2)
  1. DEPO-MEDROL [Suspect]
     Indication: DERMATITIS CONTACT
     Dosage: 80 MG, ONCE
     Dates: start: 20120920
  2. PREDNISONE [Suspect]
     Indication: DERMATITIS CONTACT
     Dosage: 10 MG, UNK
     Dates: start: 2012

REACTIONS (2)
  - Headache [Unknown]
  - Nausea [Unknown]
